FAERS Safety Report 9269958 (Version 2)
Quarter: 2013Q2

REPORT INFORMATION
  Report Type: Spontaneous
  Country: US (occurrence: US)
  Receive Date: 20130503
  Receipt Date: 20130508
  Transmission Date: 20140414
  Serious: Yes (Other)
  Sender: FDA-Public Use
  Company Number: US-PFIZER INC-2013136567

PATIENT
  Age: 73 Year
  Sex: Female
  Weight: 86.17 kg

DRUGS (7)
  1. PROTONIX [Suspect]
     Indication: GASTRIC DISORDER
     Dosage: 40 MG, 1X/DAY
     Route: 048
     Dates: start: 201012, end: 201304
  2. LISINOPRIL [Concomitant]
     Dosage: 20 MG, UNK
  3. GABAPENTIN [Concomitant]
     Dosage: 800 MG, UNK
  4. PROZAC [Concomitant]
     Dosage: 20 MG, UNK
  5. CRESTOR [Concomitant]
     Dosage: 5 MG, UNK
  6. SINGULAIR [Concomitant]
     Dosage: 10 MG, UNK
  7. WARFARIN [Concomitant]
     Dosage: 5 MG, UNK

REACTIONS (3)
  - Cerebrovascular accident [Unknown]
  - Decreased activity [Unknown]
  - Musculoskeletal disorder [Unknown]
